FAERS Safety Report 6369023-X (Version None)
Quarter: 2009Q3

REPORT INFORMATION
  Report Type: 
  Country: None (occurrence: None)
  Receive Date: 20090916
  Receipt Date: 20090908
  Transmission Date: 20100115
  Serious: Yes (Other)
  Sender: FDA-Public Use
  Company Number: ADR19532009

PATIENT
  Age: 57 Year
  Sex: Female

DRUGS (4)
  1. SERTRALINE HCL [Suspect]
     Dosage: ORAL
  2. PAROXETINE HCL [Suspect]
  3. CIPRALEX [Concomitant]
  4. FLUOXETINE [Concomitant]

REACTIONS (15)
  - AGGRESSION [None]
  - ANXIETY [None]
  - CONDITION AGGRAVATED [None]
  - DIZZINESS [None]
  - DRUG WITHDRAWAL SYNDROME [None]
  - EYE DISORDER [None]
  - HEADACHE [None]
  - INTENTIONAL OVERDOSE [None]
  - IRRITABILITY [None]
  - MIGRAINE [None]
  - MOOD ALTERED [None]
  - NAUSEA [None]
  - SELF-INJURIOUS IDEATION [None]
  - SUICIDAL IDEATION [None]
  - TEARFULNESS [None]
